FAERS Safety Report 22348170 (Version 2)
Quarter: 2023Q2

REPORT INFORMATION
  Report Type: Report from Study
  Country: US (occurrence: None)
  Receive Date: 20230522
  Receipt Date: 20230627
  Transmission Date: 20230721
  Serious: Yes (Hospitalization)
  Sender: FDA-Public Use
  Company Number: US-ROCHE-3352345

PATIENT
  Age: 72 Year
  Sex: Female
  Weight: 48 kg

DRUGS (34)
  1. COBIMETINIB [Suspect]
     Active Substance: COBIMETINIB
     Indication: Ovarian cancer recurrent
     Dosage: DOSE LAST STUDY DRUG ADMIN PRIOR AE/SAE: 20 MG?START DATE OF MOST RECENT DOSE OF STUDY DRUG PRIOR TO
     Route: 048
     Dates: start: 20200723
  2. NIRAPARIB [Suspect]
     Active Substance: NIRAPARIB
     Indication: Ovarian cancer recurrent
     Dosage: DOSE LAST STUDY DRUG ADMIN PRIOR AE/SAE: 100 MG?START DATE OF MOST RECENT DOSE OF STUDY DRUG PRIOR T
     Route: 048
     Dates: start: 20200723
  3. ATEZOLIZUMAB [Suspect]
     Active Substance: ATEZOLIZUMAB
     Indication: Ovarian cancer recurrent
     Dosage: DOSE LAST STUDY DRUG ADMIN PRIOR AE /SAE:840 MG?START DATE OF MOST RECENT DOSE OF STUDY DRUG PRIOR T
     Route: 041
     Dates: start: 20200723
  4. LATANOPROST [Concomitant]
     Active Substance: LATANOPROST
     Indication: Glaucoma
     Dates: start: 2017
  5. VITAMIN B COMPLEX [Concomitant]
     Active Substance: CYANOCOBALAMIN\DEXPANTHENOL\NIACINAMIDE\PYRIDOXINE HYDROCHLORIDE\RIBOFLAVIN 5^-PHOSPHATE SODIUM\THIA
     Indication: Nutritional supplementation
     Dates: start: 1992
  6. LEVOTHYROXINE [Concomitant]
     Active Substance: LEVOTHYROXINE
     Indication: Hypothyroidism
     Dates: start: 2015
  7. CALCIUM\VITAMIN D [Concomitant]
     Active Substance: CALCIUM\VITAMIN D
     Indication: Nutritional supplementation
     Dates: start: 2017
  8. CALCIUM\VITAMIN D [Concomitant]
     Active Substance: CALCIUM\VITAMIN D
     Indication: Osteopenia
  9. ASPIRIN [Concomitant]
     Active Substance: ASPIRIN
     Dates: start: 2009
  10. POLYETHYLENE GLYCOL 3350 [Concomitant]
     Active Substance: POLYETHYLENE GLYCOL 3350
     Indication: Constipation
     Dates: start: 2015
  11. EXCEDRIN (UNITED STATES) [Concomitant]
     Indication: Headache
     Dates: start: 2010
  12. ONDANSETRON [Concomitant]
     Active Substance: ONDANSETRON
     Indication: Nausea
     Dates: start: 20200728
  13. ONDANSETRON [Concomitant]
     Active Substance: ONDANSETRON
     Indication: Vomiting
  14. PROCHLORPERAZINE [Concomitant]
     Active Substance: PROCHLORPERAZINE
     Indication: Nausea
     Dates: start: 20200724
  15. PROCHLORPERAZINE [Concomitant]
     Active Substance: PROCHLORPERAZINE
     Indication: Vomiting
  16. LORAZEPAM [Concomitant]
     Active Substance: LORAZEPAM
     Indication: Nausea
     Dates: start: 20200724
  17. LOPERAMIDE [Concomitant]
     Active Substance: LOPERAMIDE
     Indication: Diarrhoea
     Dates: start: 20200724
  18. BISACODYL [Concomitant]
     Active Substance: BISACODYL
     Indication: Constipation
     Dates: start: 20200730
  19. ACETAMINOPHEN [Concomitant]
     Active Substance: ACETAMINOPHEN
     Indication: Pain in extremity
     Dates: start: 20201017
  20. DOCUSATE [Concomitant]
     Active Substance: DOCUSATE
     Indication: Constipation
     Dates: start: 20201015
  21. TRAVOPROST [Concomitant]
     Active Substance: TRAVOPROST
     Indication: Glaucoma
     Route: 047
     Dates: start: 20210216
  22. BRIMONIDINE TARTRATE [Concomitant]
     Active Substance: BRIMONIDINE TARTRATE
     Indication: Glaucoma
     Route: 047
     Dates: start: 20210517
  23. PANTOPRAZOLE [Concomitant]
     Active Substance: PANTOPRAZOLE
     Indication: Gastrooesophageal reflux disease
     Route: 048
     Dates: start: 202007
  24. LIVALO [Concomitant]
     Active Substance: PITAVASTATIN CALCIUM
     Indication: Hypercholesterolaemia
     Route: 048
     Dates: start: 2021
  25. COMBIGAN [Concomitant]
     Active Substance: BRIMONIDINE TARTRATE\TIMOLOL MALEATE
     Indication: Glaucoma
     Route: 047
     Dates: start: 2020
  26. ASCORBIC ACID [Concomitant]
     Active Substance: ASCORBIC ACID
     Route: 048
     Dates: start: 202208
  27. CALCIUM [Concomitant]
     Active Substance: CALCIUM
     Route: 048
     Dates: start: 202208
  28. LOSARTAN [Concomitant]
     Active Substance: LOSARTAN
     Indication: Hypertension
     Route: 048
     Dates: start: 20221021
  29. NORVASC [Concomitant]
     Active Substance: AMLODIPINE BESYLATE
     Indication: Hypertension
     Route: 048
     Dates: start: 20221117
  30. DOXYCYCLINE [Concomitant]
     Active Substance: DOXYCYCLINE
     Indication: Cough
     Route: 048
     Dates: start: 20230221
  31. FLUCONAZOLE [Concomitant]
     Active Substance: FLUCONAZOLE
     Indication: Fungal skin infection
     Route: 048
     Dates: start: 20230410
  32. NYSTATIN [Concomitant]
     Active Substance: NYSTATIN
     Indication: Fungal skin infection
     Dosage: DOSE:1000U
     Route: 061
     Dates: start: 20230411, end: 20230419
  33. CIPROFLOXACIN [Concomitant]
     Active Substance: CIPROFLOXACIN
     Indication: Urinary tract infection
     Route: 048
     Dates: start: 20230411
  34. EMLA [Concomitant]
     Active Substance: LIDOCAINE\PRILOCAINE
     Route: 061
     Dates: start: 20200723

REACTIONS (1)
  - Decreased appetite [Recovered/Resolved]

NARRATIVE: CASE EVENT DATE: 20230508
